FAERS Safety Report 13046309 (Version 1)
Quarter: 2016Q4

REPORT INFORMATION
  Report Type: Spontaneous
  Country: CH (occurrence: CH)
  Receive Date: 20161220
  Receipt Date: 20161220
  Transmission Date: 20170207
  Serious: Yes (Hospitalization, Other)
  Sender: FDA-Public Use
  Company Number: CH-GLAXOSMITHKLINE-CH2016184631

PATIENT
  Age: 65 Year
  Sex: Female
  Weight: 54 kg

DRUGS (19)
  1. NUCALA [Suspect]
     Active Substance: MEPOLIZUMAB
     Indication: ASTHMA
     Dosage: 100 MG, UNK
     Route: 058
     Dates: start: 20161017
  2. PANTOPRAZOL [Concomitant]
     Active Substance: PANTOPRAZOLE SODIUM
     Dosage: 40 MG, UNK
  3. PULMOZYME [Concomitant]
     Active Substance: DORNASE ALFA
     Dosage: 2.5 MG, QD
  4. SEREVENT DISKUS [Concomitant]
     Active Substance: SALMETEROL XINAFOATE
     Dosage: 50 ?G, BID
  5. COLISTINE [Concomitant]
     Active Substance: COLISTIN
     Dosage: UNK
  6. PULMICORT RESPULES [Concomitant]
     Active Substance: BUDESONIDE
     Dosage: 0.5 MG, BID
  7. AZITHROMYCIN ANHYDROUS. [Concomitant]
     Active Substance: AZITHROMYCIN ANHYDROUS
     Dosage: 250 MG, QD
  8. RHINOMER [Concomitant]
     Dosage: UNK
  9. CALCIUM CARBONATE + COLECALCIFEROL [Concomitant]
     Active Substance: CALCIUM CARBONATE\CHOLECALCIFEROL
     Dosage: UNK
  10. DESLORATADINE. [Concomitant]
     Active Substance: DESLORATADINE
     Dosage: 5 MG, QD
     Dates: end: 20161025
  11. CELLCEPT [Concomitant]
     Active Substance: MYCOPHENOLATE MOFETIL\MYCOPHENOLATE MOFETIL HYDROCHLORIDE
     Dosage: 1000 MG, BID
  12. VITARUBIN (HYDROXOCOBALAMIN ACETATE) [Concomitant]
     Dosage: 1000 ?G, UNK
     Route: 030
  13. ATROVENT [Concomitant]
     Active Substance: IPRATROPIUM BROMIDE
     Dosage: 2 ML, BID
  14. MONTELUKAST [Concomitant]
     Active Substance: MONTELUKAST SODIUM
     Dosage: 10 MG, QD
  15. RHINOCORT (BUDESONID) [Concomitant]
     Dosage: 64 ?G, BID
  16. MEDROL [Concomitant]
     Active Substance: METHYLPREDNISOLONE
     Dosage: 4 MG, UNK
  17. VI-DE 3 [Concomitant]
     Active Substance: CHOLECALCIFEROL
     Dosage: 3 GTT, UNK
  18. PROLIA [Concomitant]
     Active Substance: DENOSUMAB
     Dosage: 60 MG, UNK
     Route: 058
  19. SPIRICORT [Concomitant]
     Active Substance: PREDNISOLONE
     Dosage: 50 MG, UNK
     Dates: end: 20161025

REACTIONS (4)
  - Dyspnoea [Recovered/Resolved]
  - Sputum increased [Recovered/Resolved]
  - Bronchial obstruction [Recovered/Resolved]
  - Stridor [Recovered/Resolved]

NARRATIVE: CASE EVENT DATE: 20161017
